FAERS Safety Report 25744232 (Version 2)
Quarter: 2025Q4

REPORT INFORMATION
  Report Type: Report from Study
  Country: US (occurrence: US)
  Receive Date: 20250901
  Receipt Date: 20251003
  Transmission Date: 20260118
  Serious: No
  Sender: SANDOZ
  Company Number: US-SANDOZ-SDZ2025US061635

PATIENT
  Age: 12 Year
  Sex: Male

DRUGS (4)
  1. OMNITROPE [Suspect]
     Active Substance: SOMATROPIN
     Indication: Hypopituitarism
     Dosage: 4.6 MG, QD (10 MG / 1.5 ML)
     Route: 058
     Dates: start: 20250825, end: 20250825
  2. OMNITROPE [Suspect]
     Active Substance: SOMATROPIN
     Indication: Hypopituitarism
     Dosage: 4.6 MG, QD (10 MG / 1.5 ML)
     Route: 058
     Dates: start: 20250825, end: 20250825
  3. OMNITROPE [Suspect]
     Active Substance: SOMATROPIN
     Dosage: 3.6 MG, QD (10 MG / 1.5 ML)
     Route: 058
     Dates: start: 20250825, end: 20250825
  4. OMNITROPE [Suspect]
     Active Substance: SOMATROPIN
     Dosage: 3.6 MG, QD (10 MG / 1.5 ML)
     Route: 058
     Dates: start: 20250825, end: 20250825

REACTIONS (5)
  - Laboratory test abnormal [Unknown]
  - Incorrect dose administered [Unknown]
  - Wrong technique in product usage process [Unknown]
  - Wrong technique in product usage process [Unknown]
  - Device dislocation [Unknown]

NARRATIVE: CASE EVENT DATE: 20250825
